FAERS Safety Report 6805102-8 (Version None)
Quarter: 2010Q2

REPORT INFORMATION
  Report Type: 
  Country: None (occurrence: None)
  Receive Date: 20100628
  Receipt Date: 20100628
  Transmission Date: 20101027
  Serious: Yes (Other)
  Sender: FDA-Public Use
  Company Number: None

PATIENT
  Sex: Male
  Weight: 92.9874 kg

DRUGS (1)
  1. PANTOPRAZOLE [Suspect]
     Indication: GASTROOESOPHAGEAL REFLUX DISEASE
     Dosage: 1 40 MG 1 X DAY
     Dates: start: 19980101, end: 20100612

REACTIONS (16)
  - ARTHRITIS [None]
  - BRONCHITIS [None]
  - DIARRHOEA [None]
  - DIZZINESS [None]
  - ECZEMA [None]
  - INSOMNIA [None]
  - LIBIDO DECREASED [None]
  - LOSS OF CONSCIOUSNESS [None]
  - NECK PAIN [None]
  - NUCHAL RIGIDITY [None]
  - RASH [None]
  - RECTAL HAEMORRHAGE [None]
  - SKIN EXFOLIATION [None]
  - SKIN ULCER [None]
  - VERTIGO [None]
  - VOMITING [None]
